FAERS Safety Report 5469412-1 (Version None)
Quarter: 2007Q3

REPORT INFORMATION
  Report Type: 
  Country: None (occurrence: None)
  Receive Date: 20070927
  Receipt Date: 20070917
  Transmission Date: 20080115
  Serious: Yes (Hospitalization)
  Sender: FDA-Public Use
  Company Number: US-TYCO HEALTHCARE/MALLINCKRODT-T200701125

PATIENT

DRUGS (10)
  1. ACETAMINOPHEN AND CODEINE PHOSPHATE [Suspect]
     Indication: POSTOPERATIVE ANALGESIA
     Dosage: 1.75 MG/KG, 2 DOSES
     Route: 048
  2. ACETAMINOPHEN AND CODEINE PHOSPHATE [Suspect]
     Dosage: 12-24 MG/DOSE, 4 DOSES POST OP DAY 1
     Route: 048
  3. ACETAMINOPHEN AND CODEINE PHOSPHATE [Suspect]
     Dosage: 1.75 MG/KG, 1 DOSE POST OP DAY 2
     Route: 048
  4. NITROUS OXIDE [Suspect]
  5. OXYGEN [Suspect]
  6. SEVOFLURANE [Suspect]
  7. FENTANYL [Suspect]
     Dosage: 1.5 UG/KG
     Route: 042
  8. ONDANSETRON [Suspect]
     Dosage: 100 UG/KG
     Route: 042
  9. HYDROCORTISONE [Suspect]
     Dosage: 500 UG/KG
     Route: 042
  10. MORPHINE [Suspect]
     Dosage: .25 MG, SINGLE
     Route: 042

REACTIONS (4)
  - APNOEA [None]
  - CEREBRAL INFARCTION [None]
  - LOSS OF CONSCIOUSNESS [None]
  - MIOSIS [None]
